FAERS Safety Report 14400694 (Version 1)
Quarter: 2018Q1

REPORT INFORMATION
  Report Type: Spontaneous
  Country: US (occurrence: US)
  Receive Date: 20180117
  Receipt Date: 20180117
  Transmission Date: 20180509
  Serious: No
  Sender: FDA-Public Use
  Company Number: PHEH2018US001981

PATIENT
  Sex: Male
  Weight: 88.45 kg

DRUGS (1)
  1. AFINITOR [Suspect]
     Active Substance: EVEROLIMUS
     Indication: LUNG CARCINOMA CELL TYPE UNSPECIFIED STAGE 0
     Dosage: 10 MG, QD
     Route: 048
     Dates: start: 20171122, end: 20171220

REACTIONS (2)
  - Mouth ulceration [Recovered/Resolved with Sequelae]
  - Nausea [Recovered/Resolved with Sequelae]
